FAERS Safety Report 9681322 (Version 2)
Quarter: 2013Q4

REPORT INFORMATION
  Report Type: Spontaneous
  Country: DE (occurrence: DE)
  Receive Date: 20131111
  Receipt Date: 20131224
  Transmission Date: 20140711
  Serious: Yes (Death, Other)
  Sender: FDA-Public Use
  Company Number: DE-ABBVIE-13P-062-1167431-00

PATIENT
  Sex: Male

DRUGS (1)
  1. TESTOGEL [Suspect]
     Indication: PRODUCT USED FOR UNKNOWN INDICATION
     Route: 062

REACTIONS (5)
  - Brain oedema [Fatal]
  - Subdural haemorrhage [Fatal]
  - Pleural effusion [Fatal]
  - Retinal haemorrhage [Unknown]
  - Visual impairment [Unknown]
